FAERS Safety Report 23473028 (Version 2)
Quarter: 2024Q1

REPORT INFORMATION
  Report Type: Spontaneous
  Country: US (occurrence: US)
  Receive Date: 20240203
  Receipt Date: 20240209
  Transmission Date: 20240409
  Serious: Yes (Other)
  Sender: FDA-Public Use
  Company Number: US-ALTATHERA-2024ALTSPO00001

PATIENT
  Age: 1 Day
  Sex: Male
  Weight: 3 kg

DRUGS (4)
  1. SOTALOL HYDROCHLORIDE [Suspect]
     Active Substance: SOTALOL HYDROCHLORIDE
     Indication: Supraventricular tachycardia
     Dosage: FIRST DOSE
     Route: 042
  2. SOTALOL HYDROCHLORIDE [Suspect]
     Active Substance: SOTALOL HYDROCHLORIDE
     Dosage: SECOND DOSE
     Route: 042
  3. AMPICILLIN [Concomitant]
     Active Substance: AMPICILLIN
  4. GENTAMICIN [Concomitant]
     Active Substance: GENTAMICIN

REACTIONS (1)
  - Electrocardiogram QT prolonged [Recovered/Resolved]
